FAERS Safety Report 5199947-0 (Version None)
Quarter: 2007Q1

REPORT INFORMATION
  Report Type: 
  Country: None (occurrence: None)
  Receive Date: 20070103
  Receipt Date: 20061219
  Transmission Date: 20070707
  Serious: Yes (Hospitalization)
  Sender: FDA-Public Use
  Company Number: 2006BI016486

PATIENT
  Age: 51 Year
  Sex: Female

DRUGS (7)
  1. AVONEX [Suspect]
     Indication: MULTIPLE SCLEROSIS
     Dosage: 30 UG;QW;IM
     Route: 030
     Dates: start: 20010901, end: 20030801
  2. AVONEX [Suspect]
     Indication: MULTIPLE SCLEROSIS
     Dosage: 30 UG;QW;IM
     Route: 030
     Dates: start: 20030801
  3. AMITRIPTYLINE HCL [Concomitant]
  4. FELDENE [Concomitant]
  5. PAXIL [Concomitant]
  6. BENICAR [Concomitant]
  7. SYNTHROID [Concomitant]

REACTIONS (2)
  - COLITIS ULCERATIVE [None]
  - DEHYDRATION [None]
